FAERS Safety Report 6385116-5 (Version None)
Quarter: 2009Q4

REPORT INFORMATION
  Report Type: 
  Country: None (occurrence: None)
  Receive Date: 20091002
  Receipt Date: 20090924
  Transmission Date: 20100525
  Serious: Yes (Hospitalization)
  Sender: FDA-Public Use
  Company Number: JP-BRISTOL-MYERS SQUIBB COMPANY-14771737

PATIENT
  Age: 48 Year
  Sex: Male

DRUGS (6)
  1. ABILIFY [Suspect]
     Indication: SCHIZOPHRENIA
     Dosage: 17JUL08-29JUL:13D,6MG 30JUL08-10AUG08:12D,12MG 11AUG08-16OCT08:67D,18MG 17OCT08-25APR09:191D,24MG
     Route: 048
     Dates: start: 20080717, end: 20090425
  2. ROHYPNOL [Concomitant]
     Dosage: TABLET
     Dates: end: 20090425
  3. DORAL [Concomitant]
     Dosage: TABLET
     Dates: end: 20090425
  4. LITHIUM CARBONATE [Concomitant]
     Dosage: TABLET
     Dates: end: 20090425
  5. GANATON [Concomitant]
     Dosage: TABLET
     Dates: start: 20080805, end: 20090425
  6. MAGMITT [Concomitant]
     Dates: start: 20080805, end: 20090425

REACTIONS (1)
  - ILEUS PARALYTIC [None]
